FAERS Safety Report 7963611-2 (Version None)
Quarter: 2011Q4

REPORT INFORMATION
  Report Type: 
  Country: None (occurrence: None)
  Receive Date: 20111208
  Receipt Date: 20111201
  Transmission Date: 20120403
  Serious: Yes (Hospitalization)
  Sender: FDA-Public Use
  Company Number: DE-BAYER-2011-116100

PATIENT
  Age: 42 Year
  Sex: Female

DRUGS (1)
  1. ESTRADIOL VALERATE/DIENOGEST [Suspect]
     Dosage: UNK

REACTIONS (3)
  - HYPERSENSITIVITY [None]
  - RASH [None]
  - GENERALISED OEDEMA [None]
